FAERS Safety Report 7998193-2 (Version None)
Quarter: 2011Q4

REPORT INFORMATION
  Report Type: 
  Country: None (occurrence: None)
  Receive Date: 20111221
  Receipt Date: 20110404
  Transmission Date: 20120403
  Serious: No
  Sender: FDA-Public Use
  Company Number: US-GLAXOSMITHKLINE-A0921297A

PATIENT
  Age: 90 Year
  Sex: Female

DRUGS (4)
  1. CALCIUM [Concomitant]
  2. LOVAZA [Suspect]
     Indication: BLOOD TRIGLYCERIDES INCREASED
     Dosage: 1G PER DAY
     Route: 048
     Dates: start: 20080101
  3. VITAMIN B-12 [Concomitant]
  4. ASPIRIN [Concomitant]

REACTIONS (4)
  - ERUCTATION [None]
  - CHROMATURIA [None]
  - PRODUCT QUALITY ISSUE [None]
  - INFLUENZA LIKE ILLNESS [None]
